FAERS Safety Report 25989453 (Version 2)
Quarter: 2025Q4

REPORT INFORMATION
  Report Type: Report from Study
  Country: CA (occurrence: CA)
  Receive Date: 20251103
  Receipt Date: 20251115
  Transmission Date: 20260118
  Serious: Yes (Other)
  Sender: ROCHE
  Company Number: CA-ROCHE-3495320

PATIENT
  Age: 58 Year
  Sex: Female

DRUGS (12)
  1. ACTEMRA [Suspect]
     Active Substance: TOCILIZUMAB
     Indication: Rheumatoid arthritis
     Route: 058
     Dates: start: 20231201
  2. RITUXIMAB [Suspect]
     Active Substance: RITUXIMAB
     Indication: Product used for unknown indication
     Route: 065
  3. ROSUVASTATIN [Concomitant]
     Active Substance: ROSUVASTATIN
  4. SERTRALINE [Concomitant]
     Active Substance: SERTRALINE HYDROCHLORIDE
  5. ARAVA [Concomitant]
     Active Substance: LEFLUNOMIDE
  6. CHLOROQUINE [Concomitant]
     Active Substance: CHLOROQUINE
  7. ENBREL [Concomitant]
     Active Substance: ETANERCEPT
  8. METHOTREXATE [Concomitant]
     Active Substance: METHOTREXATE
  9. ORENCIA [Concomitant]
     Active Substance: ABATACEPT
  10. PLAQUENIL [Concomitant]
     Active Substance: HYDROXYCHLOROQUINE SULFATE
  11. SULFASALAZINE [Concomitant]
     Active Substance: SULFASALAZINE
  12. TOFACITINIB [Concomitant]
     Active Substance: TOFACITINIB

REACTIONS (7)
  - COVID-19 [Unknown]
  - Drug hypersensitivity [Unknown]
  - White blood cell count decreased [Unknown]
  - Fibromyalgia [Unknown]
  - Injection site pruritus [Unknown]
  - Anaphylactic reaction [Unknown]
  - Injection site rash [Unknown]

NARRATIVE: CASE EVENT DATE: 20240103
